FAERS Safety Report 9815472 (Version 1)
Quarter: 2014Q1

REPORT INFORMATION
  Report Type: Spontaneous
  Country: US (occurrence: US)
  Receive Date: 20140114
  Receipt Date: 20140114
  Transmission Date: 20141002
  Serious: Yes (Other)
  Sender: FDA-Public Use
  Company Number: US-PFIZER INC-2014010209

PATIENT
  Age: 40 Year
  Sex: Male
  Weight: 96.15 kg

DRUGS (3)
  1. LYRICA [Suspect]
     Indication: NERVOUS SYSTEM DISORDER
     Dosage: 900 MG, UNK
  2. LYRICA [Suspect]
     Indication: CRANIOCEREBRAL INJURY
     Dosage: 275 MG, UNK
  3. LAMICTAL [Concomitant]
     Indication: NERVOUS SYSTEM DISORDER
     Dosage: 100 MG IN MORNING AND 200 MG AT NIGHT, 2X/DAY
     Dates: start: 2013

REACTIONS (3)
  - Off label use [Unknown]
  - Loss of consciousness [Unknown]
  - Malaise [Unknown]
